FAERS Safety Report 16718036 (Version 1)
Quarter: 2019Q3

REPORT INFORMATION
  Report Type: Spontaneous
  Country: IN (occurrence: IN)
  Receive Date: 20190819
  Receipt Date: 20190819
  Transmission Date: 20191005
  Serious: Yes (Life-Threatening, Hospitalization)
  Sender: FDA-Public Use
  Company Number: PHHY2019IN191601

PATIENT
  Age: 40 Year
  Sex: Male

DRUGS (1)
  1. CARBAMAZEPINE. [Suspect]
     Active Substance: CARBAMAZEPINE
     Indication: GENERALISED TONIC-CLONIC SEIZURE
     Dosage: UNK
     Route: 065

REACTIONS (15)
  - Face oedema [Recovering/Resolving]
  - Blood pressure immeasurable [Recovering/Resolving]
  - Lymphadenopathy [Recovering/Resolving]
  - Dermatitis exfoliative generalised [Recovering/Resolving]
  - Drug reaction with eosinophilia and systemic symptoms [Recovering/Resolving]
  - Vomiting [Recovering/Resolving]
  - Angular cheilitis [Recovering/Resolving]
  - Transaminases increased [Recovering/Resolving]
  - Swelling [Recovering/Resolving]
  - Azotaemia [Recovering/Resolving]
  - Rash [Recovering/Resolving]
  - Nausea [Recovering/Resolving]
  - Rash maculo-papular [Recovering/Resolving]
  - Erythema [Recovering/Resolving]
  - Pyrexia [Recovering/Resolving]
